FAERS Safety Report 4296383-6 (Version None)
Quarter: 2004Q1

REPORT INFORMATION
  Report Type: 
  Country: None (occurrence: None)
  Receive Date: 20040213
  Receipt Date: 20040213
  Transmission Date: 20041129
  Serious: Yes (Hospitalization)
  Sender: FDA-Public Use
  Company Number: None

PATIENT
  Sex: Male
  Weight: 68.0396 kg

DRUGS (12)
  1. AMIODARONE [Suspect]
     Indication: CARDIAC DISORDER
     Dosage: PO [PRIOR TP ADMISSION]
     Route: 048
  2. ASPIRIN [Concomitant]
  3. COREG [Concomitant]
  4. PLAVIX [Concomitant]
  5. NORVASC [Concomitant]
  6. FOLIC ACID [Concomitant]
  7. THIAMINE [Concomitant]
  8. LANOXIN [Concomitant]
  9. SYNTHROID [Concomitant]
  10. LASIX [Concomitant]
  11. ACCUPRIL [Concomitant]
  12. CALCIUM [Concomitant]

REACTIONS (3)
  - COUGH [None]
  - DYSPNOEA [None]
  - OEDEMA PERIPHERAL [None]
